FAERS Safety Report 13306045 (Version 2)
Quarter: 2017Q1

REPORT INFORMATION
  Report Type: Report from Study
  Country: US (occurrence: US)
  Receive Date: 20170308
  Receipt Date: 20170313
  Transmission Date: 20170428
  Serious: Yes (Other)
  Sender: FDA-Public Use
  Company Number: US-NAPPMUNDI-USA-2017-0137006

PATIENT
  Sex: Male

DRUGS (4)
  1. OXYCODONE HYDROCHLORIDE. [Suspect]
     Active Substance: OXYCODONE HYDROCHLORIDE
     Indication: ARTHRALGIA
     Dosage: 60 MG, Q8H
     Route: 048
     Dates: start: 201702
  2. OXYCODONE HYDROCHLORIDE. [Suspect]
     Active Substance: OXYCODONE HYDROCHLORIDE
     Dosage: UNK UNK, TID
     Route: 048
     Dates: start: 2002
  3. OXYCODONE HYDROCHLORIDE. [Suspect]
     Active Substance: OXYCODONE HYDROCHLORIDE
     Indication: SPONDYLOLYSIS
     Dosage: 160 MG, TID
     Route: 048
     Dates: start: 2008
  4. OXYCODONE HYDROCHLORIDE. [Suspect]
     Active Substance: OXYCODONE HYDROCHLORIDE
     Indication: BONE DISORDER
     Dosage: UNK
     Route: 048
     Dates: start: 2005

REACTIONS (4)
  - Cardiovascular insufficiency [Not Recovered/Not Resolved]
  - Off label use [Unknown]
  - Arthritis [Unknown]
  - Drug effect increased [Unknown]

NARRATIVE: CASE EVENT DATE: 2008
